FAERS Safety Report 6469622-0 (Version None)
Quarter: 2009Q4

REPORT INFORMATION
  Report Type: 
  Country: None (occurrence: None)
  Receive Date: 20091203
  Receipt Date: 20081104
  Transmission Date: 20100525
  Serious: Yes (Hospitalization, Other)
  Sender: FDA-Public Use
  Company Number: US-ELI_LILLY_AND_COMPANY-US200711002612

PATIENT
  Sex: Male
  Weight: 95.238 kg

DRUGS (5)
  1. ZYPREXA [Suspect]
     Dosage: 100 MG, UNK
     Dates: start: 20040101
  2. RISPERDAL [Concomitant]
     Dates: start: 20040101, end: 20050101
  3. GEODON [Concomitant]
     Dates: start: 20040101, end: 20050101
  4. THORAZINE [Concomitant]
     Dates: start: 20040101, end: 20050101
  5. DEPAKOTE [Concomitant]
     Dates: start: 20040101, end: 20050101

REACTIONS (8)
  - ADVERSE EVENT [None]
  - BLOOD TRIGLYCERIDES INCREASED [None]
  - HEPATITIS VIRAL [None]
  - HYPERTENSION [None]
  - METABOLIC DISORDER [None]
  - OVERDOSE [None]
  - ROUTINE HEALTH MAINTENANCE [None]
  - TYPE 2 DIABETES MELLITUS [None]
